FAERS Safety Report 8213259-X (Version None)
Quarter: 2012Q1

REPORT INFORMATION
  Report Type: 
  Country: None (occurrence: None)
  Receive Date: 20120315
  Receipt Date: 20120307
  Transmission Date: 20120608
  Serious: Yes (Other)
  Sender: FDA-Public Use
  Company Number: PR-ABBOTT-12P-131-0889583-00

PATIENT
  Sex: Female
  Weight: 70.824 kg

DRUGS (7)
  1. LOSARTAN POTASSIUM [Concomitant]
     Indication: HYPERTENSION
     Route: 048
     Dates: start: 20110101
  2. SPIRIVA [Concomitant]
     Indication: ASTHMA
     Dosage: 1 PUMP DAILY
     Route: 055
     Dates: start: 20120101
  3. HUMIRA [Suspect]
     Indication: RHEUMATOID ARTHRITIS
     Route: 058
     Dates: start: 20100101, end: 20120104
  4. HUMIRA [Suspect]
     Route: 058
     Dates: start: 20120217
  5. SEREVENT [Concomitant]
     Indication: ASTHMA
     Dosage: 1 PUMP BID
     Route: 055
     Dates: start: 20100101
  6. FLOVENT HFA [Concomitant]
     Indication: ASTHMA
     Dosage: 1 PUMP BID
     Route: 055
     Dates: start: 20100101
  7. HYDROCHLOROTHIAZIDE [Concomitant]
     Indication: HYPERTENSION
     Route: 048

REACTIONS (2)
  - PYREXIA [None]
  - BIOPSY BREAST [None]
